FAERS Safety Report 7784094-1 (Version None)
Quarter: 2011Q3

REPORT INFORMATION
  Report Type: 
  Country: None (occurrence: None)
  Receive Date: 20110928
  Receipt Date: 20110618
  Transmission Date: 20111222
  Serious: No
  Sender: FDA-Public Use
  Company Number: US-BAYER-2011-053932

PATIENT

DRUGS (3)
  1. CORTICOSTEROID NOS [Concomitant]
     Dosage: UNK
     Dates: start: 20110101
  2. PARAFON FORTE [Suspect]
     Indication: HEADACHE
     Dosage: UNK, BID
  3. ALEVE (CAPLET) [Suspect]
     Indication: HEADACHE
     Dosage: UNK, BID
     Route: 048

REACTIONS (1)
  - ABDOMINAL DISCOMFORT [None]
